FAERS Safety Report 14922964 (Version 1)
Quarter: 2018Q2

REPORT INFORMATION
  Report Type: Spontaneous
  Country: JP (occurrence: JP)
  Receive Date: 20180522
  Receipt Date: 20180522
  Transmission Date: 20180711
  Serious: Yes (Other)
  Sender: FDA-Public Use
  Company Number: PHJP2018JP010743

PATIENT
  Age: 58 Year
  Sex: Female

DRUGS (1)
  1. GILENYA [Suspect]
     Active Substance: FINGOLIMOD HYDROCHLORIDE
     Indication: SECONDARY PROGRESSIVE MULTIPLE SCLEROSIS
     Dosage: UNK
     Route: 048

REACTIONS (6)
  - Central nervous system lesion [Unknown]
  - Multiple sclerosis relapse [Unknown]
  - Lymphopenia [Recovered/Resolved]
  - Product use in unapproved indication [Unknown]
  - Multiple organ dysfunction syndrome [Recovered/Resolved]
  - Rebound effect [Unknown]
